FAERS Safety Report 5353923-3 (Version None)
Quarter: 2007Q2

REPORT INFORMATION
  Report Type: 
  Country: None (occurrence: None)
  Receive Date: 20070612
  Receipt Date: 20070606
  Transmission Date: 20071010
  Serious: Yes (Congenital Anomaly)
  Sender: FDA-Public Use
  Company Number: IT-AVENTIS-200713850GDDC

PATIENT
  Sex: Male

DRUGS (1)
  1. LANTUS [Suspect]
     Indication: DIABETES MELLITUS INSULIN-DEPENDENT
     Route: 064
     Dates: end: 20050630

REACTIONS (6)
  - CONGENITAL GENITOURINARY ABNORMALITY [None]
  - DRUG EXPOSURE DURING PREGNANCY [None]
  - FOETAL DISTRESS SYNDROME [None]
  - HYDROCELE [None]
  - HYDRONEPHROSIS [None]
  - PREMATURE BABY [None]
